FAERS Safety Report 11930230 (Version 1)
Quarter: 2016Q1

REPORT INFORMATION
  Report Type: Report from Study
  Country: US (occurrence: US)
  Receive Date: 20160120
  Receipt Date: 20160120
  Transmission Date: 20160526
  Serious: Yes (Death)
  Sender: FDA-Public Use
  Company Number: US-ASTRAZENECA-2015SF11421

PATIENT
  Age: 66 Year
  Sex: Female

DRUGS (5)
  1. IRESSA [Suspect]
     Active Substance: GEFITINIB
     Indication: LUNG NEOPLASM MALIGNANT
     Route: 048
     Dates: start: 20151017
  2. LYRICA [Concomitant]
     Active Substance: PREGABALIN
  3. IRESSA [Suspect]
     Active Substance: GEFITINIB
     Indication: BONE CANCER
     Route: 048
     Dates: start: 20151017
  4. SIMVASTATIN. [Concomitant]
     Active Substance: SIMVASTATIN
  5. LISINOPRIL. [Suspect]
     Active Substance: LISINOPRIL
     Route: 048

REACTIONS (4)
  - Death [Fatal]
  - Acne [Unknown]
  - Dry skin [Unknown]
  - Pain [Unknown]
